FAERS Safety Report 6072866-3 (Version None)
Quarter: 2009Q1

REPORT INFORMATION
  Report Type: 
  Country: None (occurrence: None)
  Receive Date: 20090205
  Receipt Date: 20080905
  Transmission Date: 20090719
  Serious: Yes (Hospitalization)
  Sender: FDA-Public Use
  Company Number: 02100-JPN-06-0590

PATIENT
  Age: 49 Year
  Sex: Male

DRUGS (10)
  1. PLETAL [Suspect]
     Indication: CEREBROVASCULAR ACCIDENT
     Dates: start: 20061101, end: 20061113
  2. ASPIRIN [Concomitant]
  3. ARTEMISIA ASIATICA 95% ETHANOL EXTRACT (ARTEMISIA ASIATICA 95% ETHANOL [Concomitant]
  4. RANITIDINE HYDROCHLORIDE [Concomitant]
  5. NPH INSULIN [Concomitant]
  6. HUMAN INSULIN (HUMAN INSULIN) [Concomitant]
  7. GLIMEPIRIDE [Concomitant]
  8. ACETAMINOPHEN [Concomitant]
  9. LACTULOSE [Concomitant]
  10. PRAVASTATIN SODIUM [Concomitant]

REACTIONS (1)
  - PUTAMEN HAEMORRHAGE [None]
